FAERS Safety Report 9233807 (Version 2)
Quarter: 2013Q2

REPORT INFORMATION
  Report Type: Spontaneous
  Country: US (occurrence: None)
  Receive Date: 20121031
  Receipt Date: 20130107
  Transmission Date: 20140414
  Serious: Yes (Other)
  Sender: FDA-Public Use
  Company Number: PHEH2012US014875

PATIENT
  Age: 48 Year
  Sex: Female

DRUGS (2)
  1. GILENYA (FTY) CAPSULE, 0.5MG [Suspect]
     Indication: MULTIPLE SCLEROSIS
     Route: 048
  2. LYRICA (PREGABALIN) [Concomitant]

REACTIONS (4)
  - Hypoaesthesia oral [None]
  - Abdominal discomfort [None]
  - Ageusia [None]
  - Adverse drug reaction [None]
